FAERS Safety Report 7319298-5 (Version None)
Quarter: 2011Q1

REPORT INFORMATION
  Report Type: 
  Country: None (occurrence: None)
  Receive Date: 20110228
  Receipt Date: 20100120
  Transmission Date: 20110831
  Serious: No
  Sender: FDA-Public Use
  Company Number: A0840525A

PATIENT
  Age: 52 Year
  Sex: Male

DRUGS (3)
  1. GLYBURIDE [Concomitant]
  2. METFORMIN [Concomitant]
  3. LAMICTAL [Suspect]
     Route: 048
     Dates: start: 20080101

REACTIONS (7)
  - WEIGHT INCREASED [None]
  - SOMNOLENCE [None]
  - DEPRESSION [None]
  - DRUG INEFFECTIVE [None]
  - RASH [None]
  - PARAESTHESIA ORAL [None]
  - DYSGEUSIA [None]
